FAERS Safety Report 17464223 (Version 1)
Quarter: 2020Q1

REPORT INFORMATION
  Report Type: Spontaneous
  Country: US (occurrence: US)
  Receive Date: 20200226
  Receipt Date: 20200226
  Transmission Date: 20200409
  Serious: Yes (Other)
  Sender: FDA-Public Use
  Company Number: US-GLAXOSMITHKLINE-US2020GSK033602

PATIENT
  Sex: Female

DRUGS (9)
  1. OMEPRAZOLE. [Suspect]
     Active Substance: OMEPRAZOLE
     Indication: GASTROOESOPHAGEAL REFLUX DISEASE
     Dosage: 20 MG, BID
     Route: 065
  2. PREVACID [Suspect]
     Active Substance: LANSOPRAZOLE
     Indication: DYSPEPSIA
  3. ESOMEPRAZOLE. [Suspect]
     Active Substance: ESOMEPRAZOLE MAGNESIUM
     Indication: PRODUCT USED FOR UNKNOWN INDICATION
     Dosage: UNK
     Route: 065
  4. PANTOPRAZOLE [Suspect]
     Active Substance: PANTOPRAZOLE
     Indication: DYSPEPSIA
  5. PREVACID [Suspect]
     Active Substance: LANSOPRAZOLE
     Indication: GASTROOESOPHAGEAL REFLUX DISEASE
     Dosage: 30 MG
     Route: 065
     Dates: start: 2011, end: 2012
  6. OMEPRAZOLE. [Suspect]
     Active Substance: OMEPRAZOLE
     Indication: DYSPEPSIA
  7. PREVACID [Suspect]
     Active Substance: LANSOPRAZOLE
     Indication: DYSPEPSIA
     Dosage: UNK
     Route: 048
     Dates: start: 2011, end: 2012
  8. LANSOPRAZOLE. [Suspect]
     Active Substance: LANSOPRAZOLE
     Indication: PRODUCT USED FOR UNKNOWN INDICATION
     Dosage: UNK
     Route: 065
  9. PANTOPRAZOLE [Suspect]
     Active Substance: PANTOPRAZOLE
     Indication: GASTROOESOPHAGEAL REFLUX DISEASE
     Dosage: 40 MG, QD
     Route: 048
     Dates: start: 20130702, end: 201309

REACTIONS (37)
  - Hydroureter [Unknown]
  - Pyelonephritis [Unknown]
  - Renal failure [Unknown]
  - Single functional kidney [Unknown]
  - Urinary tract disorder [Unknown]
  - Haematuria [Unknown]
  - Nephropathy [Unknown]
  - Renal impairment [Unknown]
  - Nocturia [Unknown]
  - Chromaturia [Unknown]
  - Ureterolithiasis [Unknown]
  - Obstructive nephropathy [Unknown]
  - Urinary hesitation [Unknown]
  - Bladder prolapse [Unknown]
  - Nephroptosis [Unknown]
  - Renal mass [Unknown]
  - Incontinence [Unknown]
  - Chronic kidney disease [Unknown]
  - Renal injury [Not Recovered/Not Resolved]
  - Nephrectomy [Unknown]
  - Pollakiuria [Unknown]
  - Urine odour abnormal [Unknown]
  - Dysuria [Unknown]
  - Hydronephrosis [Unknown]
  - Renal atrophy [Unknown]
  - Nephrolithiasis [Unknown]
  - Micturition urgency [Unknown]
  - Calculus urinary [Unknown]
  - Renal disorder [Unknown]
  - Urinary retention [Unknown]
  - Urge incontinence [Unknown]
  - Stress urinary incontinence [Unknown]
  - Bladder dilatation [Unknown]
  - Bladder spasm [Unknown]
  - Bladder hypertrophy [Unknown]
  - Urine abnormality [Unknown]
  - Renal surgery [Unknown]
